FAERS Safety Report 11722124 (Version 4)
Quarter: 2016Q4

REPORT INFORMATION
  Report Type: Spontaneous
  Country: US (occurrence: US)
  Receive Date: 20151111
  Receipt Date: 20161212
  Transmission Date: 20170206
  Serious: Yes (Hospitalization, Other)
  Sender: FDA-Public Use
  Company Number: US-JNJFOC-20151003472

PATIENT
  Age: 75 Year
  Sex: Female

DRUGS (6)
  1. XARELTO [Suspect]
     Active Substance: RIVAROXABAN
     Indication: THROMBOSIS PROPHYLAXIS
     Dosage: DOSE: 15 MG-20 MG
     Route: 048
     Dates: start: 201301, end: 201401
  2. XARELTO [Suspect]
     Active Substance: RIVAROXABAN
     Indication: THROMBOSIS PROPHYLAXIS
     Dosage: 15-20MG
     Route: 048
     Dates: start: 20130924, end: 20140821
  3. XARELTO [Suspect]
     Active Substance: RIVAROXABAN
     Indication: CEREBROVASCULAR ACCIDENT PROPHYLAXIS
     Dosage: 15-20MG
     Route: 048
     Dates: start: 20130924, end: 20140821
  4. XARELTO [Suspect]
     Active Substance: RIVAROXABAN
     Indication: CEREBROVASCULAR ACCIDENT PROPHYLAXIS
     Dosage: DOSE: 15 MG-20 MG
     Route: 048
     Dates: start: 201301, end: 201401
  5. XARELTO [Suspect]
     Active Substance: RIVAROXABAN
     Indication: ATRIAL FIBRILLATION
     Dosage: DOSE: 15 MG-20 MG
     Route: 048
     Dates: start: 201301, end: 201401
  6. XARELTO [Suspect]
     Active Substance: RIVAROXABAN
     Indication: ATRIAL FIBRILLATION
     Dosage: 15-20MG
     Route: 048
     Dates: start: 20130924, end: 20140821

REACTIONS (2)
  - Internal haemorrhage [Unknown]
  - Vaginal haemorrhage [Unknown]

NARRATIVE: CASE EVENT DATE: 20140605
